FAERS Safety Report 20559443 (Version 1)
Quarter: 2022Q1

REPORT INFORMATION
  Report Type: Spontaneous
  Country: JP (occurrence: JP)
  Receive Date: 20220307
  Receipt Date: 20220307
  Transmission Date: 20220423
  Serious: Yes (Hospitalization, Other)
  Sender: FDA-Public Use
  Company Number: JP-ABBVIE-22P-087-4292550-00

PATIENT
  Sex: Male
  Weight: 6.5 kg

DRUGS (3)
  1. SYNAGIS [Suspect]
     Active Substance: PALIVIZUMAB
     Indication: Maternal exposure timing unspecified
     Route: 064
  2. DIPHTHERIA AND TETANUS TOXOIDS AND ACELLULAR PERTUSSIS ADSORBED AND IN [Suspect]
     Active Substance: DIPHTHERIA AND TETANUS TOXOIDS AND ACELLULAR PERTUSSIS ADSORBED AND INACTIVATED POLIOVIRUS VACCINE
     Indication: Maternal exposure timing unspecified
     Route: 064
  3. FREEZE DRIED GLUTAMATE BCG VACCINE (JAPAN) [Suspect]
     Active Substance: BACILLUS CALMETTE-GUERIN SUBSTRAIN TOKYO 172-1 LIVE ANTIGEN
     Indication: Maternal exposure timing unspecified
     Route: 064

REACTIONS (4)
  - Seizure [Recovered/Resolved]
  - Gaze palsy [Unknown]
  - Movement disorder [Recovered/Resolved]
  - Foetal exposure during pregnancy [Unknown]

NARRATIVE: CASE EVENT DATE: 20220215
